FAERS Safety Report 5006896-7 (Version None)
Quarter: 2006Q2

REPORT INFORMATION
  Report Type: 
  Country: None (occurrence: None)
  Receive Date: 20060516
  Receipt Date: 20060509
  Transmission Date: 20061013
  Serious: Yes (Life-Threatening)
  Sender: FDA-Public Use
  Company Number: 06H-124-0308070-00

PATIENT
  Age: 29 Year
  Sex: Female

DRUGS (3)
  1. METRONIDAZOLE [Suspect]
     Indication: PREOPERATIVE CARE
     Dosage: 500 MG, ^STAT^,
     Dates: start: 20060507
  2. METRONIDAZOLE [Suspect]
     Indication: PROPHYLAXIS
     Dosage: 500 MG, ^STAT^,
     Dates: start: 20060507
  3. AMPICILLIN [Concomitant]

REACTIONS (3)
  - ANAPHYLACTIC REACTION [None]
  - HAEMODYNAMIC INSTABILITY [None]
  - PYREXIA [None]
